FAERS Safety Report 17533005 (Version 2)
Quarter: 2020Q3

REPORT INFORMATION
  Report Type: Spontaneous
  Country: US (occurrence: US)
  Receive Date: 20200312
  Receipt Date: 20200806
  Transmission Date: 20201102
  Serious: Yes (Other)
  Sender: FDA-Public Use
  Company Number: US-GILEAD-2020-0454490

PATIENT
  Sex: Male

DRUGS (2)
  1. ATRIPLA [Suspect]
     Active Substance: EFAVIRENZ\EMTRICITABINE\TENOFOVIR DISOPROXIL FUMARATE
     Indication: HIV INFECTION
     Dosage: UNK
     Route: 048
     Dates: start: 20130313, end: 20150918
  2. TRUVADA [Suspect]
     Active Substance: EMTRICITABINE\TENOFOVIR DISOPROXIL FUMARATE
     Indication: HIV INFECTION
     Dosage: UNK
     Route: 048
     Dates: start: 20080418, end: 20121121

REACTIONS (8)
  - Anhedonia [Unknown]
  - Fracture [Unknown]
  - Economic problem [Unknown]
  - Anxiety [Unknown]
  - Rib fracture [Unknown]
  - Emotional distress [Unknown]
  - Upper limb fracture [Unknown]
  - Pain [Unknown]

NARRATIVE: CASE EVENT DATE: 2015
